FAERS Safety Report 4967732-8 (Version None)
Quarter: 2006Q2

REPORT INFORMATION
  Report Type: 
  Country: None (occurrence: None)
  Receive Date: 20060410
  Receipt Date: 20051207
  Transmission Date: 20061013
  Serious: Yes (Disabling)
  Sender: FDA-Public Use
  Company Number: US-MERCK-0512USA01337

PATIENT
  Age: 51 Year
  Sex: Female
  Weight: 93 kg

DRUGS (1)
  1. VIOXX [Suspect]
     Indication: ROAD TRAFFIC ACCIDENT
     Route: 048
     Dates: start: 20031007, end: 20040301

REACTIONS (3)
  - ARRHYTHMIA [None]
  - DEPRESSION [None]
  - ROAD TRAFFIC ACCIDENT [None]
